FAERS Safety Report 21425823 (Version 5)
Quarter: 2023Q1

REPORT INFORMATION
  Report Type: Spontaneous
  Country: DE (occurrence: DE)
  Receive Date: 20221008
  Receipt Date: 20230203
  Transmission Date: 20230418
  Serious: Yes (Other)
  Sender: FDA-Public Use
  Company Number: DE-TORRENT-00023145

PATIENT

DRUGS (23)
  1. PREGABALIN [Suspect]
     Active Substance: PREGABALIN
     Indication: Pain
     Dosage: 50 MG, QD (THREE TIMES A DAY; 50-50-150 MG)
     Route: 065
     Dates: end: 2019
  2. PREGABALIN [Suspect]
     Active Substance: PREGABALIN
     Indication: Analgesic therapy
     Dosage: 300 MG, QD
     Route: 065
  3. PREGABALIN [Suspect]
     Active Substance: PREGABALIN
     Dosage: 150 MG OF PREGABALIN IN THE MORNING AND IN THE EVENING
     Route: 065
     Dates: start: 2019
  4. PREGABALIN [Suspect]
     Active Substance: PREGABALIN
     Dosage: PREGABALIN THREE TIMES A DAY
     Route: 065
  5. HYDROMORPHONE [Suspect]
     Active Substance: HYDROMORPHONE
     Indication: Pain
     Dosage: 16 MG, QD (16 MG HYDROMORPHONE IN A 24-HOUR GALENIC/ EVERY 24)
     Route: 065
     Dates: start: 2017
  6. .DELTA.10-TETRAHYDROCANNABINOL\HERBALS [Suspect]
     Active Substance: .DELTA.10-TETRAHYDROCANNABINOL\HERBALS
     Indication: Pain
     Dosage: 2.5 MG, QD (A DAILY DOSE OF 2.5-2.5-7.5 MG THC 10 ADMINISTERED)
     Route: 048
     Dates: start: 2022
  7. OXYCODONE [Suspect]
     Active Substance: OXYCODONE
     Indication: Analgesic therapy
     Dosage: (30-30-40 MG)
     Route: 048
  8. OXYCODONE [Suspect]
     Active Substance: OXYCODONE
     Dosage: UNK (ORAL OPIOID THERAPY WITH PROLONGED-RELEASE OXYCODONE)
     Route: 048
  9. OXYCODONE [Suspect]
     Active Substance: OXYCODONE
     Dosage: 100 MG, Q8H
     Route: 048
  10. AMBROXOL [Suspect]
     Active Substance: AMBROXOL
     Indication: Pain
     Dosage: LOCAL THERAPY ON THE SHOULDER
     Route: 065
  11. AMBROXOL [Suspect]
     Active Substance: AMBROXOL
     Indication: Analgesic therapy
     Dosage: UNK, (CREAM CONTAINING 20% AMBROXOL) CREAM CONTAINING 20% AMBROXOL
     Route: 065
     Dates: start: 2019
  12. MORPHINE [Suspect]
     Active Substance: MORPHINE
     Indication: Pain
     Dosage: 10 MG (SIX AND EIGHT TIMES DAILY)
     Route: 048
  13. AMITRIPTYLINE [Suspect]
     Active Substance: AMITRIPTYLINE
     Indication: Pain
     Dosage: 25 MG AMITRIPTYLINE AT NIGHT
     Route: 065
  14. DICLOFENAC [Suspect]
     Active Substance: DICLOFENAC
     Indication: Bone pain
     Dosage: NON-STEROIDAL ANTI-INFLAMMATORY DRUG DICLOFENAC
     Route: 065
  15. DICLOFENAC [Suspect]
     Active Substance: DICLOFENAC
     Indication: Soft tissue disorder
  16. DICLOFENAC [Suspect]
     Active Substance: DICLOFENAC
     Indication: Pain
  17. ZOLEDRONIC ACID [Suspect]
     Active Substance: ZOLEDRONIC ACID
     Indication: Pain
     Dosage: I.V. EVERY FOUR WEEKS
     Route: 042
  18. ZOLEDRONIC ACID [Suspect]
     Active Substance: ZOLEDRONIC ACID
     Indication: Analgesic therapy
     Route: 065
     Dates: start: 2021
  19. LENALIDOMIDE [Suspect]
     Active Substance: LENALIDOMIDE
     Indication: Immunomodulatory therapy
     Dosage: UNKNOWN
     Route: 065
     Dates: start: 2021
  20. LENALIDOMIDE [Suspect]
     Active Substance: LENALIDOMIDE
     Dosage: 300 MG, QD
     Route: 065
     Dates: start: 2021
  21. IBUPROFEN [Suspect]
     Active Substance: IBUPROFEN
     Indication: Bone pain
     Dosage: THERAPY WITH IBUPROFEN IN UNKNOWN DOSAGE WHENEVER AFFLICTED WITH BONE
     Route: 065
     Dates: start: 2016
  22. IBUPROFEN [Suspect]
     Active Substance: IBUPROFEN
     Dosage: FROM: //2016 TO : WHENEVER AFFLICTED WITH BONE
     Route: 065
  23. VITAMIN D [Concomitant]
     Active Substance: VITAMIN D NOS
     Indication: Product used for unknown indication
     Dosage: 2000 IU VITAMIN D PER DAY
     Route: 065

REACTIONS (8)
  - Neoplasm progression [Unknown]
  - Sleep disorder [Recovered/Resolved]
  - Decreased appetite [Recovered/Resolved]
  - Condition aggravated [Recovered/Resolved]
  - Depression [Recovered/Resolved]
  - Somnolence [Recovered/Resolved]
  - Drug ineffective [Unknown]
  - Fatigue [Not Recovered/Not Resolved]

NARRATIVE: CASE EVENT DATE: 20170101
